FAERS Safety Report 7888339-9 (Version None)
Quarter: 2011Q4

REPORT INFORMATION
  Report Type: 
  Country: None (occurrence: None)
  Receive Date: 20111103
  Receipt Date: 20111031
  Transmission Date: 20120403
  Serious: Yes (Other)
  Sender: FDA-Public Use
  Company Number: GB-TEVA-298647ISR

PATIENT
  Age: 68 Year
  Sex: Female

DRUGS (1)
  1. MIRTAZAPINE [Suspect]
     Route: 048

REACTIONS (3)
  - HYPERTONIA [None]
  - TREMOR [None]
  - PARKINSON'S DISEASE [None]
